FAERS Safety Report 7297657-7 (Version None)
Quarter: 2011Q1

REPORT INFORMATION
  Report Type: 
  Country: None (occurrence: None)
  Receive Date: 20110216
  Receipt Date: 20110208
  Transmission Date: 20110831
  Serious: Yes (Disabling)
  Sender: FDA-Public Use
  Company Number: ES-MERCK-1102ESP00016

PATIENT
  Sex: Male

DRUGS (5)
  1. TACROLIMUS [Suspect]
     Indication: LIVER TRANSPLANT
     Route: 065
  2. ISENTRESS [Suspect]
     Route: 048
     Dates: start: 20110207
  3. MYCOPHENOLATE MOFETIL [Concomitant]
     Indication: LIVER TRANSPLANT
     Route: 065
  4. ISENTRESS [Suspect]
     Indication: HIV INFECTION
     Route: 048
     Dates: start: 20100101, end: 20110101
  5. ISENTRESS [Suspect]
     Route: 048
     Dates: start: 20110201, end: 20110201

REACTIONS (2)
  - DYSARTHRIA [None]
  - MUTISM [None]
